FAERS Safety Report 10035701 (Version 3)
Quarter: 2014Q3

REPORT INFORMATION
  Report Type: Spontaneous
  Country: US (occurrence: US)
  Receive Date: 20140325
  Receipt Date: 20140703
  Transmission Date: 20150326
  Serious: Yes (Death)
  Sender: FDA-Public Use
  Company Number: US-GLAXOSMITHKLINE-A1065853A

PATIENT
  Age: 63 Year
  Sex: Male

DRUGS (4)
  1. CHEMOTHERAPY [Concomitant]
     Active Substance: UNSPECIFIED INGREDIENT
  2. ATIVAN [Concomitant]
     Active Substance: LORAZEPAM
  3. UNKNOWN STOMACH MEDICATION [Concomitant]
  4. ARIXTRA [Suspect]
     Active Substance: FONDAPARINUX SODIUM
     Indication: THROMBOSIS
     Route: 065
     Dates: start: 2012

REACTIONS (2)
  - Renal failure [Fatal]
  - Lung neoplasm malignant [Fatal]
